FAERS Safety Report 9881910 (Version 1)
Quarter: 2014Q1

REPORT INFORMATION
  Report Type: Spontaneous
  Country: US (occurrence: US)
  Receive Date: 20140207
  Receipt Date: 20140207
  Transmission Date: 20141002
  Serious: Yes (Hospitalization)
  Sender: FDA-Public Use
  Company Number: US-MALLINCKRODT-T201401099

PATIENT
  Sex: Female

DRUGS (2)
  1. GABLOFEN [Suspect]
     Indication: MUSCLE SPASTICITY
     Dosage: 900 MCG/DAY
     Route: 037
  2. GABLOFEN [Suspect]
     Dosage: 1300 MCG/DAY
     Route: 037

REACTIONS (6)
  - Drug withdrawal syndrome [Unknown]
  - Hallucination [Unknown]
  - Back injury [Unknown]
  - Fall [Unknown]
  - Muscle spasticity [Unknown]
  - Pruritus [Unknown]
